FAERS Safety Report 7831489-3 (Version None)
Quarter: 2011Q4

REPORT INFORMATION
  Report Type: 
  Country: None (occurrence: None)
  Receive Date: 20111021
  Receipt Date: 20111021
  Transmission Date: 20120403
  Serious: Yes (Hospitalization)
  Sender: FDA-Public Use
  Company Number: None

PATIENT
  Sex: Male
  Weight: 76.203 kg

DRUGS (1)
  1. ULORIC [Suspect]
     Indication: GOUT
     Dosage: 80MGS
     Route: 048
     Dates: start: 20110619, end: 20110627

REACTIONS (2)
  - OEDEMA PERIPHERAL [None]
  - DEFORMITY [None]
